FAERS Safety Report 22969158 (Version 2)
Quarter: 2023Q4

REPORT INFORMATION
  Report Type: Spontaneous
  Country: GB (occurrence: GB)
  Receive Date: 20230922
  Receipt Date: 20231005
  Transmission Date: 20240110
  Serious: Yes (Other)
  Sender: FDA-Public Use
  Company Number: GB-NOVOPROD-1115459

PATIENT
  Sex: Female

DRUGS (1)
  1. OZEMPIC [Suspect]
     Active Substance: SEMAGLUTIDE
     Indication: Weight control
     Dosage: UNK

REACTIONS (5)
  - Loss of consciousness [Unknown]
  - Device issue [Unknown]
  - Blood glucose decreased [Unknown]
  - Counterfeit product administered [Unknown]
  - Product use in unapproved indication [Unknown]
